FAERS Safety Report 21982147 (Version 7)
Quarter: 2024Q2

REPORT INFORMATION
  Report Type: Report from Study
  Country: GB (occurrence: GB)
  Receive Date: 20230213
  Receipt Date: 20240514
  Transmission Date: 20240715
  Serious: Yes (Death)
  Sender: FDA-Public Use
  Company Number: GB-CELLTRION INC.-2023GB002884

PATIENT

DRUGS (4)
  1. BEVACIZUMAB [Suspect]
     Active Substance: BEVACIZUMAB
     Indication: Hepatocellular carcinoma
     Dosage: 1100 MG
     Route: 042
     Dates: start: 20221230
  2. ATEZOLIZUMAB [Suspect]
     Active Substance: ATEZOLIZUMAB
     Indication: Hepatocellular carcinoma
     Dosage: 1200 MG
     Route: 042
     Dates: start: 20221230
  3. DEXAMETHASONE [Concomitant]
     Active Substance: DEXAMETHASONE
     Dosage: QD
     Dates: start: 20230210
  4. DOCUSATE [Concomitant]
     Active Substance: DOCUSATE
     Dosage: 0.5 DAY
     Dates: start: 20230209

REACTIONS (3)
  - Death [Fatal]
  - Fatigue [Recovering/Resolving]
  - Intentional product use issue [Unknown]

NARRATIVE: CASE EVENT DATE: 20230101
